FAERS Safety Report 9350986 (Version 2)
Quarter: 2013Q3

REPORT INFORMATION
  Report Type: Spontaneous
  Country: NO (occurrence: NO)
  Receive Date: 20130617
  Receipt Date: 20130708
  Transmission Date: 20140515
  Serious: Yes (Other)
  Sender: FDA-Public Use
  Company Number: NO-ROCHE-1235993

PATIENT
  Age: 20 Year
  Sex: Female

DRUGS (6)
  1. XOLAIR [Suspect]
     Indication: ASTHMA
     Dosage: RECEIVED 10 INJECTIONS
     Route: 058
     Dates: start: 20120928, end: 20130521
  2. SINGULAIR [Concomitant]
  3. FLUTIDE [Concomitant]
  4. VENTOLINE [Concomitant]
  5. SERETIDE [Concomitant]
  6. AERIUS [Concomitant]

REACTIONS (4)
  - Serum sickness [Unknown]
  - Dyspnoea [Unknown]
  - Productive cough [Unknown]
  - Oropharyngeal pain [Unknown]
